FAERS Safety Report 12938660 (Version 1)
Quarter: 2016Q4

REPORT INFORMATION
  Report Type: Spontaneous
  Country: US (occurrence: US)
  Receive Date: 20161115
  Receipt Date: 20161115
  Transmission Date: 20170207
  Serious: No
  Sender: FDA-Public Use
  Company Number: US-PFIZER INC-2016528047

PATIENT

DRUGS (2)
  1. NEXIUM 24HR [Suspect]
     Active Substance: ESOMEPRAZOLE MAGNESIUM
     Dosage: UNK
     Dates: start: 201611
  2. DIAZEPAM. [Suspect]
     Active Substance: DIAZEPAM
     Dosage: UNK

REACTIONS (7)
  - Rash pruritic [Unknown]
  - Headache [Unknown]
  - Psychomotor hyperactivity [Unknown]
  - Rash papular [Unknown]
  - Panic attack [Unknown]
  - Heart rate increased [Unknown]
  - Rash [Unknown]

NARRATIVE: CASE EVENT DATE: 201611
